FAERS Safety Report 10357531 (Version 1)
Quarter: 2014Q3

REPORT INFORMATION
  Report Type: Spontaneous
  Country: US (occurrence: None)
  Receive Date: 20140730
  Receipt Date: 20140730
  Transmission Date: 20150326
  Serious: Yes (Other)
  Sender: FDA-Public Use
  Company Number: None

PATIENT
  Age: 43 Year
  Sex: Male
  Weight: 95.26 kg

DRUGS (6)
  1. VISTARILL [Concomitant]
  2. BACLOFEN. [Concomitant]
     Active Substance: BACLOFEN
  3. RELAFEN [Suspect]
     Active Substance: NABUMETONE
     Indication: BONE PAIN
     Dosage: 750 MG, ONE PILL, TWICE DAILY, BY MOUTH
     Route: 048
     Dates: start: 20140711, end: 20140713
  4. ZOLOFT [Concomitant]
     Active Substance: SERTRALINE HYDROCHLORIDE
  5. ZYPREXA [Concomitant]
     Active Substance: OLANZAPINE
  6. VALIUM [Concomitant]
     Active Substance: DIAZEPAM

REACTIONS (1)
  - Diarrhoea [None]

NARRATIVE: CASE EVENT DATE: 20140711
